FAERS Safety Report 10065188 (Version 1)
Quarter: 2014Q2

REPORT INFORMATION
  Report Type: Spontaneous
  Country: US (occurrence: None)
  Receive Date: 20140404
  Receipt Date: 20140404
  Transmission Date: 20141212
  Serious: Yes (Other)
  Sender: FDA-Public Use
  Company Number: UTC-046567

PATIENT
  Age: 52 Year
  Sex: Female
  Weight: 56.78 kg

DRUGS (2)
  1. REMODULIN [Suspect]
     Indication: PULMONARY ARTERIAL HYPERTENSION
     Dosage: (1 IN 1 MIN),SUBCUTANEOUS
     Route: 058
     Dates: start: 20140228
  2. ADCIRCA (TADALAFIL) [Concomitant]

REACTIONS (1)
  - Loss of consciousness [None]
